FAERS Safety Report 9759787 (Version 3)
Quarter: 2015Q3

REPORT INFORMATION
  Report Type: Spontaneous
  Country: US (occurrence: US)
  Receive Date: 20131216
  Receipt Date: 20150806
  Transmission Date: 20151125
  Serious: No
  Sender: FDA-Public Use
  Company Number: US-GILEAD-2010-0029057

PATIENT
  Age: 45 Year
  Sex: Male
  Weight: 70.31 kg

DRUGS (8)
  1. LETAIRIS [Suspect]
     Active Substance: AMBRISENTAN
     Indication: PULMONARY ARTERIAL HYPERTENSION
     Route: 048
     Dates: start: 20091009
  2. TRUVADA [Concomitant]
     Active Substance: EMTRICITABINE\TENOFOVIR DISOPROXIL FUMARATE
  3. LOPERAMIDE [Concomitant]
     Active Substance: LOPERAMIDE
  4. DAILY MULTIVITAMIN [Concomitant]
     Active Substance: VITAMINS
  5. NORVIR [Concomitant]
     Active Substance: RITONAVIR
  6. LEXAPRO [Concomitant]
     Active Substance: ESCITALOPRAM OXALATE
  7. DIAZEPAM. [Concomitant]
     Active Substance: DIAZEPAM
  8. LEXIVA [Concomitant]
     Active Substance: FOSAMPRENAVIR CALCIUM

REACTIONS (1)
  - Hepatic enzyme increased [Not Recovered/Not Resolved]

NARRATIVE: CASE EVENT DATE: 20100414
